FAERS Safety Report 23913602 (Version 1)
Quarter: 2024Q2

REPORT INFORMATION
  Report Type: Other
  Country: AR (occurrence: None)
  Receive Date: 20240529
  Receipt Date: 20240529
  Transmission Date: 20240715
  Serious: Yes (Other)
  Sender: FDA-Public Use
  Company Number: AR-ROCHE-3569377

PATIENT
  Age: 65 Year
  Sex: Female

DRUGS (3)
  1. VEMURAFENIB [Suspect]
     Active Substance: VEMURAFENIB
     Indication: Malignant melanoma
     Route: 065
     Dates: start: 201501, end: 201505
  2. IPILIMUMAB [Concomitant]
     Active Substance: IPILIMUMAB
     Dosage: FIVE COURSES
     Dates: start: 201509
  3. PEMBROLIZUMAB [Concomitant]
     Active Substance: PEMBROLIZUMAB
     Dates: start: 201606, end: 201909

REACTIONS (3)
  - Skin toxicity [Unknown]
  - Neoplasm progression [Unknown]
  - Drug ineffective [Unknown]
